FAERS Safety Report 10045613 (Version 2)
Quarter: 2014Q1

REPORT INFORMATION
  Report Type: Report from Study
  Country: US (occurrence: US)
  Receive Date: 20140328
  Receipt Date: 20140328
  Transmission Date: 20141002
  Serious: Yes (Death)
  Sender: FDA-Public Use
  Company Number: US-B.I. PHARMACEUTICALS,INC./RIDGEFIELD-2014-BI-05715BI

PATIENT
  Age: 88 Year
  Sex: Female

DRUGS (10)
  1. GILOTRIF [Suspect]
     Indication: NON-SMALL CELL LUNG CANCER
     Dosage: 40 MG
     Route: 048
     Dates: start: 20140131
  2. GILOTRIF [Suspect]
     Dosage: 40 MG
     Route: 048
     Dates: start: 20140201, end: 20140211
  3. GILOTRIF [Suspect]
     Dosage: 40 MG
     Route: 048
     Dates: end: 20140301
  4. LOSARTAN [Concomitant]
     Route: 065
  5. HYDROCHLOROTHIAZIDE [Concomitant]
     Route: 065
  6. MULTIVITAMIN [Concomitant]
     Route: 065
  7. FISH OIL [Concomitant]
     Route: 065
  8. CALCIUM 600 [Concomitant]
     Route: 065
  9. PRECRIPTION MOISTURIZER ALOE VESTA LOTION FOR DIARRHEA [Concomitant]
     Indication: DIARRHOEA
     Route: 065
  10. EUCERIN SUN SCREEN SPF 30 [Concomitant]
     Route: 065

REACTIONS (6)
  - Cough [Fatal]
  - Diarrhoea [Recovered/Resolved]
  - Diarrhoea [Not Recovered/Not Resolved]
  - Decreased appetite [Not Recovered/Not Resolved]
  - Asthenia [Not Recovered/Not Resolved]
  - Cough [Not Recovered/Not Resolved]
